FAERS Safety Report 10450903 (Version 1)
Quarter: 2014Q3

REPORT INFORMATION
  Report Type: Report from Study
  Country: UG (occurrence: UG)
  Receive Date: 20140912
  Receipt Date: 20140912
  Transmission Date: 20150326
  Serious: Yes (Life-Threatening, Other)
  Sender: FDA-Public Use
  Company Number: UG-GILEAD-2014-0114590

PATIENT
  Age: 33 Year
  Sex: Female

DRUGS (4)
  1. NYSTATIN. [Concomitant]
     Active Substance: NYSTATIN
     Indication: VULVOVAGINAL CANDIDIASIS
     Dosage: UNK
     Dates: start: 20140116
  2. EMTRICITABINE/TENOFOVIR DISOPROXIL FUMARATE [Suspect]
     Active Substance: EMTRICITABINE\TENOFOVIR DISOPROXIL
     Indication: HIV INFECTION
     Dosage: UNK
     Route: 065
     Dates: start: 20130705, end: 20131213
  3. ALCOHOL. [Concomitant]
     Active Substance: ALCOHOL
     Dosage: UNK
  4. FLUCONAZOLE. [Concomitant]
     Active Substance: FLUCONAZOLE
     Indication: VULVOVAGINAL CANDIDIASIS
     Dosage: UNK
     Dates: start: 20140116, end: 20140116

REACTIONS (1)
  - Abortion spontaneous [Recovered/Resolved]

NARRATIVE: CASE EVENT DATE: 20140404
